FAERS Safety Report 7823697-2 (Version None)
Quarter: 2011Q4

REPORT INFORMATION
  Report Type: 
  Country: None (occurrence: None)
  Receive Date: 20111019
  Receipt Date: 20111013
  Transmission Date: 20120403
  Serious: Yes (Other)
  Sender: FDA-Public Use
  Company Number: US-PFIZER INC-2011245126

PATIENT
  Sex: Male

DRUGS (4)
  1. ZOLOFT [Suspect]
     Indication: DEPRESSION
     Dosage: 50 MG, 1X/DAY
     Route: 048
     Dates: start: 20091020
  2. ZOLOFT [Suspect]
     Dosage: 100 MG, 1X/DAY
     Route: 048
     Dates: start: 20091102
  3. ZOLOFT [Suspect]
     Dosage: 100 MG, 1X/DAY
     Route: 048
     Dates: start: 20100410
  4. ZOLOFT [Suspect]
     Dosage: 150 MG, 1X/DAY
     Route: 048
     Dates: start: 20091130

REACTIONS (3)
  - ENCEPHALOPATHY [None]
  - AMNESIA [None]
  - LOSS OF CONSCIOUSNESS [None]
